FAERS Safety Report 15447852 (Version 2)
Quarter: 2018Q3

REPORT INFORMATION
  Report Type: Spontaneous
  Country: US (occurrence: US)
  Receive Date: 20180928
  Receipt Date: 20180928
  Transmission Date: 20181010
  Serious: Yes (Other)
  Sender: FDA-Public Use
  Company Number: PHHY2018US104239

PATIENT
  Sex: Male

DRUGS (14)
  1. LEVOTHYROXINE. [Suspect]
     Active Substance: LEVOTHYROXINE
     Indication: FOETAL EXPOSURE DURING PREGNANCY
     Dosage: MATERNAL DOSE: 150 MG, QD
     Route: 064
  2. PREDNISONE. [Suspect]
     Active Substance: PREDNISONE
     Indication: FOETAL EXPOSURE DURING PREGNANCY
     Dosage: MATERNAL DOSE: 20 MG, QD
     Route: 064
  3. FUROSEMIDE. [Suspect]
     Active Substance: FUROSEMIDE
     Indication: FOETAL EXPOSURE DURING PREGNANCY
     Dosage: MATERNAL DOSE: 80 MG, QD
     Route: 064
  4. VANCOMYCIN [Suspect]
     Active Substance: VANCOMYCIN
     Indication: FOETAL EXPOSURE DURING PREGNANCY
     Route: 064
  5. METHYLPREDNISOLONE. [Suspect]
     Active Substance: METHYLPREDNISOLONE
     Indication: FOETAL EXPOSURE DURING PREGNANCY
     Dosage: MATERNAL DOSE: 16 MG, QD
     Route: 064
  6. VITAMIN D [Suspect]
     Active Substance: CHOLECALCIFEROL
     Indication: FOETAL EXPOSURE DURING PREGNANCY
     Route: 064
  7. LABETALOL [Suspect]
     Active Substance: LABETALOL\LABETALOL HYDROCHLORIDE
     Indication: FOETAL EXPOSURE DURING PREGNANCY
     Dosage: MATERNAL DOSE: 400 MG, BID
     Route: 064
  8. CALCIUM [Suspect]
     Active Substance: CALCIUM
     Indication: FOETAL EXPOSURE DURING PREGNANCY
     Route: 064
  9. MYCOPHENOLATE MOFETIL. [Suspect]
     Active Substance: MYCOPHENOLATE MOFETIL
     Indication: FOETAL EXPOSURE DURING PREGNANCY
     Dosage: MATERNAL DOSE: 3 G, QD
     Route: 064
  10. CEFTRIAXONE. [Suspect]
     Active Substance: CEFTRIAXONE
     Indication: FOETAL EXPOSURE DURING PREGNANCY
     Route: 064
  11. HYDROXYCHLOROQUINE [Suspect]
     Active Substance: HYDROXYCHLOROQUINE
     Indication: FOETAL EXPOSURE DURING PREGNANCY
     Dosage: MATERNAL DOSE: 200 MG, QD
     Route: 064
  12. ASPIRIN. [Suspect]
     Active Substance: ASPIRIN
     Indication: FOETAL EXPOSURE DURING PREGNANCY
     Dosage: MATERNAL DOSE: 81 MG, QD
     Route: 064
  13. URSODEOXYCHOLIC ACID [Suspect]
     Active Substance: URSODIOL
     Indication: FOETAL EXPOSURE DURING PREGNANCY
     Dosage: MATERNAL DOSE: 300 MG, TID
     Route: 064
  14. CICLOSPORIN [Suspect]
     Active Substance: CYCLOSPORINE
     Indication: FOETAL EXPOSURE DURING PREGNANCY
     Dosage: MATERNAL DOSE: 100 MG, BID
     Route: 064

REACTIONS (3)
  - Premature baby [Unknown]
  - Low birth weight baby [Unknown]
  - Foetal exposure during pregnancy [Unknown]
